FAERS Safety Report 4431837-0 (Version None)
Quarter: 2004Q3

REPORT INFORMATION
  Report Type: 
  Country: None (occurrence: None)
  Receive Date: 20040819
  Receipt Date: 20040804
  Transmission Date: 20050211
  Serious: Yes (Hospitalization)
  Sender: FDA-Public Use
  Company Number: A01200403691

PATIENT
  Age: 52 Year
  Sex: Male

DRUGS (3)
  1. PLAVIX [Suspect]
     Indication: CORONARY ARTERIAL STENT INSERTION
     Dosage: NI UNK; ORAL ( A FEW DAYS - TIME TO ONSET: A FEW DAYS)
     Route: 048
  2. ACETYLSALICYLIC ACID SRT [Concomitant]
  3. ... [Concomitant]

REACTIONS (1)
  - VASCULITIS [None]
